FAERS Safety Report 6467695-2 (Version None)
Quarter: 2009Q4

REPORT INFORMATION
  Report Type: 
  Country: None (occurrence: None)
  Receive Date: 20091202
  Receipt Date: 20091125
  Transmission Date: 20100525
  Serious: Yes (Death, Hospitalization)
  Sender: FDA-Public Use
  Company Number: CZ-SANOFI-AVENTIS-2009SA004608

PATIENT
  Age: 56 Year
  Sex: Female

DRUGS (3)
  1. OXALIPLATIN [Suspect]
     Indication: COLORECTAL CANCER
     Route: 065
     Dates: start: 20091023, end: 20091023
  2. CAPECITABINE [Suspect]
     Indication: COLORECTAL CANCER
     Route: 065
     Dates: start: 20091023, end: 20091109
  3. BEVACIZUMAB [Suspect]
     Indication: COLORECTAL CANCER
     Route: 065
     Dates: start: 20091023, end: 20091023

REACTIONS (4)
  - DEHYDRATION [None]
  - DIARRHOEA [None]
  - METABOLIC DISORDER [None]
  - VOMITING [None]
